FAERS Safety Report 24681284 (Version 2)
Quarter: 2025Q3

REPORT INFORMATION
  Report Type: Spontaneous
  Country: EU (occurrence: EU)
  Receive Date: 20241129
  Receipt Date: 20250803
  Transmission Date: 20251020
  Serious: Yes (Other)
  Sender: ALEXION PHARMACEUTICALS
  Company Number: EU-MYLANLABS-2024M1102311

PATIENT
  Age: 72 Year
  Sex: Female

DRUGS (11)
  1. DAPAGLIFLOZIN [Suspect]
     Active Substance: DAPAGLIFLOZIN
  2. BISOPROLOL [Concomitant]
     Active Substance: BISOPROLOL
  3. SPIRONOLACTONE [Concomitant]
     Active Substance: SPIRONOLACTONE
  4. CYCLOPHOSPHAMIDE [Concomitant]
     Active Substance: CYCLOPHOSPHAMIDE
  5. PACLITAXEL [Concomitant]
     Active Substance: PACLITAXEL
  6. TRASTUZUMAB [Concomitant]
     Active Substance: TRASTUZUMAB
  7. PERTUZUMAB [Concomitant]
     Active Substance: PERTUZUMAB
  8. FUROSEMIDE [Concomitant]
     Active Substance: FUROSEMIDE
  9. LEVOSIMENDAN [Concomitant]
     Active Substance: LEVOSIMENDAN
  10. APIXABAN [Concomitant]
     Active Substance: APIXABAN
  11. EXEMESTANE [Concomitant]
     Active Substance: EXEMESTANE

REACTIONS (3)
  - Cachexia [Recovered/Resolved]
  - Decreased appetite [Unknown]
  - Dizziness [Unknown]

NARRATIVE: CASE EVENT DATE: 20240401
